FAERS Safety Report 5899291-X (Version None)
Quarter: 2008Q3

REPORT INFORMATION
  Report Type: 
  Country: None (occurrence: None)
  Receive Date: 20080925
  Receipt Date: 20080918
  Transmission Date: 20090109
  Serious: Yes (Hospitalization)
  Sender: FDA-Public Use
  Company Number: JP-MERCK-0809USA00991

PATIENT
  Age: 43 Year
  Sex: Male

DRUGS (7)
  1. ZETIA [Suspect]
     Indication: HYPERCHOLESTEROLAEMIA
     Route: 048
     Dates: start: 20080701, end: 20080820
  2. LIPITOR [Concomitant]
     Route: 065
  3. ASPIRIN [Concomitant]
     Route: 065
  4. CILOSTAZOL [Concomitant]
     Route: 065
  5. SARPOGRELATE HYDROCHLORIDE [Concomitant]
     Route: 065
  6. NATEGLINIDE [Concomitant]
     Route: 065
  7. METFORMIN HYDROCHLORIDE [Concomitant]
     Route: 065

REACTIONS (3)
  - ALANINE AMINOTRANSFERASE INCREASED [None]
  - ASPARTATE AMINOTRANSFERASE INCREASED [None]
  - HEPATIC FUNCTION ABNORMAL [None]
